FAERS Safety Report 10283202 (Version 1)
Quarter: 2014Q3

REPORT INFORMATION
  Report Type: Report from Study
  Country: US (occurrence: US)
  Receive Date: 20140708
  Receipt Date: 20140708
  Transmission Date: 20150326
  Serious: Yes (Other)
  Sender: FDA-Public Use
  Company Number: PHEH2014US013320

PATIENT
  Sex: Female

DRUGS (2)
  1. GLEEVEC [Suspect]
     Active Substance: IMATINIB MESYLATE
     Indication: SMALL INTESTINE CARCINOMA
  2. GLEEVEC [Suspect]
     Active Substance: IMATINIB MESYLATE
     Indication: GASTRIC CANCER
     Dosage: 400 MG, QD
     Route: 048

REACTIONS (2)
  - Cerebrovascular accident [Unknown]
  - Muscular weakness [Unknown]
